FAERS Safety Report 5194757-2 (Version None)
Quarter: 2006Q4

REPORT INFORMATION
  Report Type: 
  Country: None (occurrence: None)
  Receive Date: 20061229
  Receipt Date: 20060925
  Transmission Date: 20070319
  Serious: Yes (Other)
  Sender: FDA-Public Use
  Company Number: US-ELI_LILLY_AND_COMPANY-US200609007429

PATIENT
  Age: 47 Year
  Sex: Male
  Weight: 155 kg

DRUGS (4)
  1. THIOTHIXENE HYDROCHLORIDE [Concomitant]
     Dates: start: 19700101
  2. DEPAKOTE [Concomitant]
     Dates: start: 20000101
  3. HYDROCHLOROTHIAZIDE [Concomitant]
     Dates: start: 20030101
  4. ZYPREXA [Suspect]
     Dosage: 10 MG, UNK
     Route: 065
     Dates: start: 20010101, end: 20030101

REACTIONS (4)
  - DIABETES MELLITUS [None]
  - GLYCOSURIA [None]
  - HYPERGLYCAEMIA [None]
  - LACTIC ACIDOSIS [None]
